FAERS Safety Report 20923242 (Version 2)
Quarter: 2023Q4

REPORT INFORMATION
  Report Type: Report from Study
  Country: CA (occurrence: CA)
  Receive Date: 20220607
  Receipt Date: 20231003
  Transmission Date: 20240110
  Serious: Yes (Death, Hospitalization)
  Sender: FDA-Public Use
  Company Number: CA-MYLANLABS-2022M1041937

PATIENT
  Age: 92 Year
  Sex: Female
  Weight: 58.97 kg

DRUGS (1)
  1. HULIO [Suspect]
     Active Substance: ADALIMUMAB-FKJP
     Indication: Rheumatoid arthritis
     Dosage: 40 MILLIGRAM, BIWEEKLY
     Route: 058

REACTIONS (7)
  - Death [Fatal]
  - Hospitalisation [Recovered/Resolved]
  - Inappropriate schedule of product administration [Unknown]
  - Joint swelling [Recovered/Resolved]
  - COVID-19 [Unknown]
  - Dehydration [Unknown]
  - Illness [Unknown]

NARRATIVE: CASE EVENT DATE: 20220512
